FAERS Safety Report 20054570 (Version 3)
Quarter: 2022Q1

REPORT INFORMATION
  Report Type: Report from Study
  Country: CA (occurrence: CA)
  Receive Date: 20211110
  Receipt Date: 20220203
  Transmission Date: 20220423
  Serious: Yes (Hospitalization, Other)
  Sender: FDA-Public Use
  Company Number: CA-ABBVIE-21K-028-4154061-00

PATIENT
  Age: 48 Year
  Sex: Female
  Weight: 70 kg

DRUGS (2)
  1. HUMIRA [Suspect]
     Active Substance: ADALIMUMAB
     Indication: Crohn^s disease
     Route: 058
     Dates: start: 20120110, end: 20211005
  2. IMURAN [Concomitant]
     Active Substance: AZATHIOPRINE
     Indication: Crohn^s disease
     Route: 048

REACTIONS (5)
  - Gastrointestinal stoma complication [Recovered/Resolved]
  - Intestinal fistula [Unknown]
  - Proctectomy [Unknown]
  - Hernia repair [Recovered/Resolved]
  - Abdominal abscess [Unknown]

NARRATIVE: CASE EVENT DATE: 20211015
